FAERS Safety Report 24288860 (Version 1)
Quarter: 2024Q3

REPORT INFORMATION
  Report Type: Spontaneous
  Country: GB (occurrence: GB)
  Receive Date: 20240906
  Receipt Date: 20240906
  Transmission Date: 20241016
  Serious: Yes (Other)
  Sender: ACCORD
  Company Number: None

PATIENT
  Age: 56 Year
  Sex: Male
  Weight: 123 kg

DRUGS (10)
  1. AMITRIPTYLINE [Suspect]
     Active Substance: AMITRIPTYLINE
     Indication: Ill-defined disorder
     Dosage: STRENGTH: 10MG
     Dates: start: 20240827
  2. AMITRIPTYLINE HYDROCHLORIDE [Concomitant]
     Active Substance: AMITRIPTYLINE HYDROCHLORIDE
     Indication: Ill-defined disorder
     Dosage: ONE TABLET TO BE TAKEN AT NIGHT TO HELP PAIN
     Dates: start: 20240822
  3. ATORVASTATIN [Concomitant]
     Active Substance: ATORVASTATIN
     Indication: Ill-defined disorder
     Dosage: ONE TABLET TO BE TAKEN DAILY TO LOWER CHOLESTEROL
     Dates: start: 20230327
  4. ALLOPURINOL [Concomitant]
     Active Substance: ALLOPURINOL
     Indication: Ill-defined disorder
     Dosage: ONE TABLET TO BE TAKEN ONCE A DAY FOR 2 WEEKS
     Dates: start: 20230327
  5. COLCHICINE [Concomitant]
     Active Substance: COLCHICINE
     Indication: Ill-defined disorder
     Dosage: TAKE ONE TABLET TWO TO FOUR TIMES A DAY UNTIL
     Dates: start: 20240802
  6. COCODAMOL [Concomitant]
     Active Substance: ACETAMINOPHEN\CODEINE PHOSPHATE
     Indication: Ill-defined disorder
     Dosage: 1-2QDSPRN
     Dates: start: 20240822
  7. DOXAZOSIN [Concomitant]
     Active Substance: DOXAZOSIN MESYLATE
     Indication: Ill-defined disorder
     Dosage: ONE TABLET TO BE TAKEN ONCE A DAY
     Dates: start: 20221130
  8. LERCANIDIPINE HYDROCHLORIDE [Concomitant]
     Active Substance: LERCANIDIPINE HYDROCHLORIDE
     Indication: Ill-defined disorder
     Dosage: TAKE ONE DAILY
     Dates: start: 20230327
  9. NAPROXEN [Concomitant]
     Active Substance: NAPROXEN
     Indication: Ill-defined disorder
     Dosage: 1-2 TO BE TAKEN TWICE DAILY WHEN REQUIRED WITH
     Dates: start: 20240822
  10. OMEPRAZOLE [Concomitant]
     Active Substance: OMEPRAZOLE
     Indication: Ill-defined disorder
     Dosage: ONE CAPSULE TO BE TAKEN ONCE A DAY TO REDUCE
     Dates: start: 20230313

REACTIONS (1)
  - Joint swelling [Recovered/Resolved]

NARRATIVE: CASE EVENT DATE: 20240827
